FAERS Safety Report 23854703 (Version 3)
Quarter: 2024Q3

REPORT INFORMATION
  Report Type: Spontaneous
  Country: BR (occurrence: BR)
  Receive Date: 20240514
  Receipt Date: 20240809
  Transmission Date: 20241016
  Serious: Yes (Hospitalization, Other)
  Sender: PURDUE
  Company Number: BR-NAPPMUNDI-GBR-2024-0114986

PATIENT
  Age: 29 Year
  Sex: Female
  Weight: 68 kg

DRUGS (8)
  1. BUPRENORPHINE [Suspect]
     Active Substance: BUPRENORPHINE
     Indication: Arthralgia
     Dosage: 10 MILLIGRAM, WEEKLY (BOUGHT 2 NEW PACKAGES)
     Route: 062
     Dates: start: 20240226
  2. BUPRENORPHINE [Suspect]
     Active Substance: BUPRENORPHINE
     Dosage: 10 MILLIGRAM, WEEKLY (EVERY SEVEN DAYS)
     Route: 062
     Dates: start: 20240501, end: 20240503
  3. BUPRENORPHINE [Suspect]
     Active Substance: BUPRENORPHINE
     Dosage: 10 MILLIGRAM, WEEKLY
     Route: 062
     Dates: start: 20240508
  4. OXYCONTIN [Suspect]
     Active Substance: OXYCODONE HYDROCHLORIDE
     Indication: Arthralgia
     Dosage: 10 MILLIGRAM (BOUGHT A NEW PACKAGE)
     Route: 048
  5. OXYCONTIN [Suspect]
     Active Substance: OXYCODONE HYDROCHLORIDE
     Dosage: 20 MILLIGRAM
     Route: 048
     Dates: start: 202311
  6. DULOXETINE [Concomitant]
     Active Substance: DULOXETINE
     Indication: Depression
     Dosage: ONCE A DAY
     Route: 048
  7. DULOXETINE [Concomitant]
     Active Substance: DULOXETINE
     Indication: Anxiety
  8. DULOXETINE [Concomitant]
     Active Substance: DULOXETINE
     Indication: Fibromyalgia

REACTIONS (10)
  - Hospitalisation [Recovered/Resolved]
  - Major depression [Not Recovered/Not Resolved]
  - Product packaging quantity issue [Unknown]
  - Drug ineffective [Unknown]
  - Application site pruritus [Recovered/Resolved]
  - Application site pain [Recovered/Resolved]
  - Application site hypersensitivity [Recovered/Resolved]
  - Product adhesion issue [Unknown]
  - Erythema [Recovered/Resolved]
  - Pruritus [Recovered/Resolved]

NARRATIVE: CASE EVENT DATE: 20230101
